FAERS Safety Report 7720485-2 (Version None)
Quarter: 2011Q3

REPORT INFORMATION
  Report Type: 
  Country: None (occurrence: None)
  Receive Date: 20110817
  Receipt Date: 20110512
  Transmission Date: 20111222
  Serious: Yes (Hospitalization, Other)
  Sender: FDA-Public Use
  Company Number: 20109583

PATIENT
  Sex: Male

DRUGS (1)
  1. LIORESAL [Suspect]
     Indication: MUSCLE SPASTICITY
     Dosage: DAILY, INTRATHECAL
     Route: 037

REACTIONS (5)
  - IMPLANT SITE EROSION [None]
  - OVERDOSE [None]
  - HYPOTONIA [None]
  - IMPLANT SITE INFECTION [None]
  - NAUSEA [None]
